FAERS Safety Report 20883204 (Version 1)
Quarter: 2022Q2

REPORT INFORMATION
  Report Type: Spontaneous
  Country: US (occurrence: US)
  Receive Date: 20220527
  Receipt Date: 20220527
  Transmission Date: 20220721
  Serious: No
  Sender: FDA-Public Use
  Company Number: US-BRISTOL-MYERS SQUIBB COMPANY-2022-048126

PATIENT
  Age: 68 Year
  Sex: Male
  Weight: 122.02 kg

DRUGS (1)
  1. REVLIMID [Suspect]
     Active Substance: LENALIDOMIDE
     Indication: Plasma cell myeloma
     Dosage: DAILY 14 DAYS OFF 7 DAYS
     Route: 048
     Dates: end: 20220301

REACTIONS (1)
  - Blood creatinine increased [Not Recovered/Not Resolved]
